FAERS Safety Report 11419290 (Version 1)
Quarter: 2015Q3

REPORT INFORMATION
  Report Type: Spontaneous
  Country: US (occurrence: None)
  Receive Date: 20150824
  Receipt Date: 20150824
  Transmission Date: 20151125
  Serious: No
  Sender: FDA-Public Use
  Company Number: None

PATIENT
  Age: 54 Year
  Sex: Female

DRUGS (5)
  1. EYE DROPS [Concomitant]
     Active Substance: TETRAHYDROZOLINE HYDROCHLORIDE
  2. HIGH PROTEIN DIET [Concomitant]
  3. NATURE MADE HAIR, SKIN AND NAILS [Concomitant]
  4. ROGAINE 5% [Suspect]
     Active Substance: MINOXIDIL
     Indication: ALOPECIA
     Dosage: ROGAINE 5% -1 APPLICATION TWICE DAILY APPLIED TO A SURFACE, USUALLY THE SKIN
     Route: 061
     Dates: start: 20150724, end: 20150821
  5. BIOTIN [Concomitant]
     Active Substance: BIOTIN

REACTIONS (3)
  - Rash [None]
  - Pruritus [None]
  - Nausea [None]

NARRATIVE: CASE EVENT DATE: 20150724
